FAERS Safety Report 25442186 (Version 1)
Quarter: 2025Q2

REPORT INFORMATION
  Report Type: Spontaneous
  Country: US (occurrence: US)
  Receive Date: 20250616
  Receipt Date: 20250616
  Transmission Date: 20250716
  Serious: Yes (Hospitalization)
  Sender: GILEAD
  Company Number: US-GILEAD-2025-0717122

PATIENT
  Sex: Male

DRUGS (6)
  1. EPCLUSA [Suspect]
     Active Substance: SOFOSBUVIR\VELPATASVIR
     Indication: Chronic hepatitis C
     Dosage: 1 DOSAGE FORM, QD (TAKE 1 TABLET BY MOUTH ONCE DAILY FOR 12 WEEKS)
     Route: 048
     Dates: start: 20250527
  2. LASIX [Concomitant]
     Active Substance: FUROSEMIDE
  3. ASPIRIN [Concomitant]
     Active Substance: ASPIRIN
  4. METHADONE [Concomitant]
     Active Substance: METHADONE HYDROCHLORIDE
  5. ELIQUIS [Concomitant]
     Active Substance: APIXABAN
  6. COLACE [Concomitant]
     Active Substance: DOCUSATE SODIUM

REACTIONS (2)
  - Pleural effusion [Unknown]
  - Cardiac valve disease [Unknown]
